FAERS Safety Report 8589632-7 (Version None)
Quarter: 2012Q3

REPORT INFORMATION
  Report Type: 
  Country: None (occurrence: None)
  Receive Date: 20120813
  Receipt Date: 20120806
  Transmission Date: 20120928
  Serious: Yes (Hospitalization)
  Sender: FDA-Public Use
  Company Number: BE-PFIZER INC-2012192228

PATIENT
  Sex: Female
  Weight: 73.2 kg

DRUGS (2)
  1. GENOTROPIN [Suspect]
     Dosage: 0.3 MG, 7-WK
     Route: 058
     Dates: start: 20040915
  2. GESTODENE AND ETHINYL ESTRADIOL [Concomitant]
     Indication: CONTRACEPTION
     Dosage: UNK
     Dates: start: 20050701

REACTIONS (1)
  - WEIGHT INCREASED [None]
